FAERS Safety Report 7809969-6 (Version None)
Quarter: 2011Q4

REPORT INFORMATION
  Report Type: 
  Country: None (occurrence: None)
  Receive Date: 20111006
  Receipt Date: 20110922
  Transmission Date: 20120403
  Serious: Yes (Other)
  Sender: FDA-Public Use
  Company Number: TPA2011A06109

PATIENT
  Age: 81 Year
  Sex: Male

DRUGS (19)
  1. PREDNISONE [Concomitant]
  2. SIMVASTATIN [Concomitant]
  3. DALTIAZEM XR (DILTIAZEM HYDROCHLORIDE) [Concomitant]
  4. CARVEDILOL [Concomitant]
  5. VITAMIN D [Concomitant]
  6. MULTIVITAMIN (ERGOCALCIFEROL, ASCORBIC ACID, PYRIDOXINE HYDROCHLORIDE, [Concomitant]
  7. CALCIUM + D (ERGOCALCIFEROL, CALCIUM) [Concomitant]
  8. NITROSTAT [Concomitant]
  9. FOLIC ACID [Concomitant]
  10. COUMADIN [Concomitant]
  11. LOVAZA [Concomitant]
  12. GLUCOSAMINE CHONDROITIN (GLUCOSAMINE HYDROCHLORIDE, CHONDROITIN SULFAT [Concomitant]
  13. IRON [Concomitant]
  14. GLYBURIDE [Concomitant]
  15. METFORMIN HYDROCHLORIDE [Concomitant]
  16. ACTOS [Suspect]
     Indication: TYPE 2 DIABETES MELLITUS
     Dosage: PER ORAL
     Route: 048
     Dates: start: 20110101
  17. ASCORBIC ACID [Concomitant]
  18. ISOSORBIDE MONONITRATE [Concomitant]
  19. ASPIRIN [Concomitant]

REACTIONS (1)
  - BLADDER CANCER [None]
